FAERS Safety Report 21751209 (Version 8)
Quarter: 2024Q1

REPORT INFORMATION
  Report Type: Report from Study
  Country: CN (occurrence: CN)
  Receive Date: 20221220
  Receipt Date: 20240305
  Transmission Date: 20240410
  Serious: Yes (Hospitalization)
  Sender: FDA-Public Use
  Company Number: CN-ABBVIE-4195216

PATIENT
  Age: 59 Year
  Sex: Female
  Weight: 47 kg

DRUGS (13)
  1. HUMIRA [Suspect]
     Active Substance: ADALIMUMAB
     Indication: Crohn^s disease
     Dosage: 80 MILLIGRAM
     Route: 058
     Dates: start: 20221022, end: 20221117
  2. HUMIRA [Suspect]
     Active Substance: ADALIMUMAB
     Dosage: 160 MILLIGRAM
     Route: 058
     Dates: start: 20221021, end: 20221021
  3. HUMIRA [Suspect]
     Active Substance: ADALIMUMAB
     Dosage: 80 MILLIGRAM
     Route: 058
     Dates: start: 20230202, end: 20230214
  4. HUMIRA [Suspect]
     Active Substance: ADALIMUMAB
     Dosage: 40 MILLIGRAM
     Route: 058
     Dates: start: 20230215, end: 20230427
  5. HUMIRA [Suspect]
     Active Substance: ADALIMUMAB
     Dosage: 40 MILLIGRAM
     Route: 058
     Dates: start: 20221118, end: 20221130
  6. HUMIRA [Suspect]
     Active Substance: ADALIMUMAB
     Dosage: 160 MILLIGRAM
     Route: 058
     Dates: start: 20230201, end: 20230201
  7. HUMIRA [Suspect]
     Active Substance: ADALIMUMAB
     Route: 058
     Dates: start: 20230429, end: 20230615
  8. HUMIRA [Suspect]
     Active Substance: ADALIMUMAB
     Route: 058
     Dates: start: 20231019, end: 20231114
  9. DICLOFENAC DIETHYLAMINE [Concomitant]
     Active Substance: DICLOFENAC DIETHYLAMINE
     Indication: Osteoarthritis
     Dosage: EMULGEL1 PERCENT (20G:0.2G)?ONCE
     Route: 061
     Dates: start: 20230119, end: 20230119
  10. PROPOFOL [Concomitant]
     Active Substance: PROPOFOL
     Indication: Endoscopy upper gastrointestinal tract
     Dosage: 80 MILLIGRAM, EMULSION INJECTION?ONCE
     Route: 042
     Dates: start: 20230119, end: 20230119
  11. Compound amino acid injection (6aa) [Concomitant]
     Indication: Product used for unknown indication
     Route: 042
     Dates: start: 20230118, end: 20230205
  12. LIDOCAINE HYDROCHLORIDE [Concomitant]
     Active Substance: LIDOCAINE HYDROCHLORIDE
     Indication: Endoscopy upper gastrointestinal tract
     Dosage: ONCE
     Route: 042
     Dates: start: 20230119, end: 20230119
  13. MESALAMINE [Concomitant]
     Active Substance: MESALAMINE
     Indication: Crohn^s disease
     Dosage: 0.5 GRAM
     Dates: start: 20230815

REACTIONS (5)
  - Duodenal ulcer [Recovered/Resolved]
  - Pepsinogen I increased [Recovering/Resolving]
  - Digestive enzyme increased [Recovering/Resolving]
  - Blood gastrin decreased [Recovering/Resolving]
  - Hepatic function abnormal [Recovering/Resolving]

NARRATIVE: CASE EVENT DATE: 20221026
